FAERS Safety Report 15963879 (Version 1)
Quarter: 2019Q1

REPORT INFORMATION
  Report Type: Spontaneous
  Country: IN (occurrence: IN)
  Receive Date: 20190214
  Receipt Date: 20190214
  Transmission Date: 20190417
  Serious: Yes (Hospitalization, Other)
  Sender: FDA-Public Use
  Company Number: IN-009507513-1902IND004429

PATIENT
  Age: 28 Year
  Sex: Female
  Weight: 53.5 kg

DRUGS (23)
  1. LINEZOLID. [Suspect]
     Active Substance: LINEZOLID
     Indication: BONE TUBERCULOSIS
     Dosage: 600 MILLIGRAM, QD
     Route: 065
     Dates: start: 20190108
  2. CYCLOSERINE. [Suspect]
     Active Substance: CYCLOSERINE
     Indication: BONE TUBERCULOSIS
     Dosage: 750 MILLIGRAM, QD
     Route: 065
     Dates: start: 20190108, end: 20190115
  3. CLOFAZIMINE [Suspect]
     Active Substance: CLOFAZIMINE
     Indication: TUBERCULOSIS
  4. WYSOLONE [Concomitant]
     Active Substance: PREDNISOLONE
     Indication: IMMUNOSUPPRESSION
     Dosage: 5 MILLIGRAM
  5. SEPTRAN [Concomitant]
     Indication: PRODUCT USED FOR UNKNOWN INDICATION
  6. IMIPENEM AND CILASTATIN [Suspect]
     Active Substance: CILASTATIN SODIUM\IMIPENEM
     Indication: BONE TUBERCULOSIS
     Dosage: 1 GRAM, BID
     Route: 042
     Dates: start: 20190114
  7. IMIPENEM AND CILASTATIN [Suspect]
     Active Substance: CILASTATIN SODIUM\IMIPENEM
     Indication: TUBERCULOSIS
  8. AMOXCLAV [Suspect]
     Active Substance: AMOXICILLIN\CLAVULANIC ACID
     Indication: BONE TUBERCULOSIS
     Dosage: 625 MILLIGRAM, BID
     Route: 065
     Dates: start: 20190114
  9. AMOXCLAV [Suspect]
     Active Substance: AMOXICILLIN\CLAVULANIC ACID
     Indication: TUBERCULOSIS
  10. CYCLOSERINE. [Suspect]
     Active Substance: CYCLOSERINE
     Indication: TUBERCULOSIS
  11. CLOFAZIMINE [Suspect]
     Active Substance: CLOFAZIMINE
     Indication: BONE TUBERCULOSIS
     Dosage: 200 MILLIGRAM, QD (FOR 2 MONTHS)
     Route: 065
     Dates: start: 20190108
  12. DELAMANID [Suspect]
     Active Substance: DELAMANID
     Indication: TUBERCULOSIS
  13. BEDAQUILINE [Suspect]
     Active Substance: BEDAQUILINE
     Indication: BONE TUBERCULOSIS
     Dosage: 400 MILLIGRAM, QD, FOR 2 WEEKS
     Route: 048
     Dates: start: 20190108, end: 201901
  14. OMEPRAZOLE. [Concomitant]
     Active Substance: OMEPRAZOLE
     Indication: GASTRITIS
     Dosage: UNK
     Dates: start: 20181217
  15. BENADON [Concomitant]
     Active Substance: PYRIDOXINE HYDROCHLORIDE
     Indication: PROPHYLAXIS
     Dosage: UNK
     Dates: start: 20181217
  16. METOPROLOL. [Concomitant]
     Active Substance: METOPROLOL
     Indication: HYPERTENSION
     Dosage: UNK
     Dates: start: 2014
  17. DILTIAZEM. [Concomitant]
     Active Substance: DILTIAZEM
     Indication: HYPERTENSION
     Dosage: UNK
     Dates: start: 2014
  18. MYCOPHENOLATE MOFETIL. [Concomitant]
     Active Substance: MYCOPHENOLATE MOFETIL
     Indication: IMMUNOSUPPRESSION
     Dosage: UNK
     Dates: start: 2014
  19. TACROLIMUS. [Concomitant]
     Active Substance: TACROLIMUS
     Indication: IMMUNOSUPPRESSION
     Dosage: 1 MILLIGRAM, UNK
     Dates: start: 2014
  20. DELAMANID [Suspect]
     Active Substance: DELAMANID
     Indication: BONE TUBERCULOSIS
     Dosage: 50 MILLIGRAM, BID
     Route: 048
     Dates: start: 20190108
  21. BEDAQUILINE [Suspect]
     Active Substance: BEDAQUILINE
     Indication: TUBERCULOSIS
     Dosage: 200 MILLIGRAM, TIW
     Route: 048
     Dates: start: 201901
  22. LINEZOLID. [Suspect]
     Active Substance: LINEZOLID
     Indication: TUBERCULOSIS
  23. METOCLOPRAMIDE. [Concomitant]
     Active Substance: METOCLOPRAMIDE
     Indication: VOMITING
     Dosage: UNK
     Dates: start: 20181217

REACTIONS (4)
  - Sleep deficit [Unknown]
  - Underdose [Unknown]
  - Product use in unapproved indication [Unknown]
  - Psychotic disorder [Unknown]

NARRATIVE: CASE EVENT DATE: 201901
